FAERS Safety Report 16459143 (Version 1)
Quarter: 2019Q2

REPORT INFORMATION
  Report Type: Spontaneous
  Country: NL (occurrence: NL)
  Receive Date: 20190620
  Receipt Date: 20190620
  Transmission Date: 20190711
  Serious: Yes (Hospitalization)
  Sender: FDA-Public Use
  Company Number: NL-MYLANLABS-2019M1057007

PATIENT
  Age: 58 Year
  Sex: Female
  Weight: 81 kg

DRUGS (14)
  1. CANDESARTAN. [Interacting]
     Active Substance: CANDESARTAN
     Indication: HYPERTENSION
     Dosage: 1DD
     Route: 048
     Dates: start: 201809, end: 20181218
  2. SPIRONOLACTONE. [Suspect]
     Active Substance: SPIRONOLACTONE
     Indication: HYPOKALAEMIA
     Dosage: 3DD
     Route: 048
     Dates: start: 201809, end: 20181217
  3. LOSARTAN. [Concomitant]
     Active Substance: LOSARTAN
     Dosage: 1DD
  4. ACLIDINIUM [Concomitant]
     Active Substance: ACLIDINIUM BROMIDE
     Dosage: 1DD
  5. SEREVENT DISKUS [Concomitant]
     Active Substance: SALMETEROL XINAFOATE
     Dosage: 2DD2
  6. FUROSEMIDE. [Concomitant]
     Active Substance: FUROSEMIDE
     Dosage: 2DD
  7. COLECALCIFEROL [Concomitant]
     Active Substance: CHOLECALCIFEROL
     Dosage: 1DD
  8. METOPROLOL. [Concomitant]
     Active Substance: METOPROLOL
     Dosage: 1DD
  9. LITHIUMCARBONAAT [Interacting]
     Active Substance: LITHIUM CARBONATE
     Indication: BIPOLAR DISORDER
     Dosage: 2,5 P/DAG
     Route: 048
     Dates: start: 20181021, end: 20181217
  10. FORMOTEROL [Concomitant]
     Active Substance: FORMOTEROL
     Dosage: 1DD
  11. FERROFUMARAAT [Concomitant]
     Dosage: 1DD
  12. OMEPRAZOL                          /00661201/ [Concomitant]
     Active Substance: OMEPRAZOLE
     Dosage: 2DD
  13. FENPROCOUMON [Concomitant]
     Active Substance: PHENPROCOUMON
     Dosage: VOLGENS AFSPRAAK
  14. ATORVASTATINE                      /01326101/ [Concomitant]
     Active Substance: ATORVASTATIN
     Dosage: 1DD

REACTIONS (4)
  - Acute kidney injury [Recovering/Resolving]
  - Hyperkalaemia [Recovered/Resolved]
  - Toxicity to various agents [Recovering/Resolving]
  - Drug interaction [Unknown]

NARRATIVE: CASE EVENT DATE: 20181121
